FAERS Safety Report 6426725-4 (Version None)
Quarter: 2009Q4

REPORT INFORMATION
  Report Type: 
  Country: None (occurrence: None)
  Receive Date: 20091030
  Receipt Date: 20091016
  Transmission Date: 20100525
  Serious: Yes (Death, Life-Threatening, Hospitalization)
  Sender: FDA-Public Use
  Company Number: AUR-APL-2009-01074

PATIENT
  Age: 71 Year
  Sex: Female

DRUGS (6)
  1. PAROXETINE HCL [Suspect]
     Dosage: 20MG - BID - ORAL
     Route: 048
     Dates: start: 20090101, end: 20090503
  2. LYRICA [Suspect]
     Dosage: 50MG - TID - ORAL
     Route: 048
     Dates: start: 20090101, end: 20090503
  3. EQUANIL TAB [Suspect]
     Dosage: 400MG - TID - ORAL
     Route: 048
     Dates: start: 20090101, end: 20090503
  4. TRANXENE [Suspect]
     Dosage: 20MG - QID - ORAL
     Route: 048
     Dates: start: 20090101, end: 20090503
  5. NOCTAMID TABLET [Suspect]
     Dosage: 2MG - ORAL
     Route: 048
     Dates: start: 20090101, end: 20090503
  6. MIANSERIN HCL [Suspect]
     Dosage: ORAL
     Route: 048
     Dates: start: 20090101, end: 20090503

REACTIONS (3)
  - CARDIO-RESPIRATORY ARREST [None]
  - FOREIGN BODY [None]
  - POST-ANOXIC MYOCLONUS [None]
